FAERS Safety Report 20232162 (Version 6)
Quarter: 2022Q1

REPORT INFORMATION
  Report Type: Report from Study
  Country: KR (occurrence: None)
  Receive Date: 20211227
  Receipt Date: 20220331
  Transmission Date: 20220423
  Serious: Yes (Hospitalization)
  Sender: FDA-Public Use
  Company Number: KR-ROCHE-2984603

PATIENT
  Age: 51 Year
  Sex: Female
  Weight: 51.6 kg

DRUGS (18)
  1. ATEZOLIZUMAB [Suspect]
     Active Substance: ATEZOLIZUMAB
     Indication: HER2 positive breast cancer
     Dosage: START DATE OF MOST RECENT DOSE OF STUDY DRUG PRIOR TO AE/SAE: 25/NOV/2021
     Route: 041
     Dates: start: 20211014
  2. ADO-TRASTUZUMAB EMTANSINE [Suspect]
     Active Substance: ADO-TRASTUZUMAB EMTANSINE
     Indication: HER2 positive breast cancer
     Dosage: ON 25/NOV/2021, MOST RECENT DOSE OF STUDY DRUG PRIOR TO AE AND SAE IS 204.8 MG/KG.
     Route: 042
     Dates: start: 20211014
  3. TAMOXIFEN [Concomitant]
     Active Substance: TAMOXIFEN
     Route: 048
     Dates: start: 20210928
  4. TACOPEN [Concomitant]
     Indication: Prophylaxis
     Dates: start: 20211104
  5. PIPERACILLIN SODIUM\TAZOBACTAM SODIUM [Concomitant]
     Active Substance: PIPERACILLIN SODIUM\TAZOBACTAM SODIUM
     Indication: Radiation pneumonitis
     Dates: start: 20211217, end: 20211222
  6. LEVOFLOXACIN [Concomitant]
     Active Substance: LEVOFLOXACIN
     Indication: Radiation pneumonitis
     Dates: start: 20211217, end: 20211222
  7. PACETA [Concomitant]
     Indication: Pyrexia
     Dates: start: 20211217, end: 20211221
  8. PERI OLIMEL N4E [Concomitant]
     Dates: start: 20211217, end: 20211220
  9. LYRICA [Concomitant]
     Active Substance: PREGABALIN
     Indication: Peripheral sensory neuropathy
     Dates: start: 20211217, end: 20211220
  10. TACENOL [Concomitant]
     Indication: Pyrexia
     Dates: start: 20201218, end: 20211220
  11. LEVOPLUS (SOUTH KOREA) [Concomitant]
     Indication: Radiation pneumonitis
     Dates: start: 20211223, end: 20211224
  12. GODEX (SOUTH KOREA) [Concomitant]
     Indication: Aspartate aminotransferase increased
     Dates: start: 20211228, end: 20220118
  13. LACTULOSE [Concomitant]
     Active Substance: LACTULOSE
     Indication: Constipation
     Dates: start: 20220125, end: 20220217
  14. TRIAMCINOLONE [Concomitant]
     Active Substance: TRIAMCINOLONE
     Dates: start: 20211123, end: 20211123
  15. DESOWEN [Concomitant]
     Active Substance: DESONIDE
     Indication: Rash maculo-papular
     Route: 061
     Dates: start: 20211124, end: 20211208
  16. DESOWEN [Concomitant]
     Active Substance: DESONIDE
     Route: 061
     Dates: start: 20220128
  17. POTASSIUM CHLORIDE [Concomitant]
     Active Substance: POTASSIUM CHLORIDE
     Indication: Hypokalaemia
     Dates: start: 20211221, end: 20220125
  18. TWOLION [Concomitant]
     Dates: start: 20220128

REACTIONS (1)
  - Platelet count decreased [Recovered/Resolved]

NARRATIVE: CASE EVENT DATE: 20211216
